FAERS Safety Report 9503699 (Version 1)
Quarter: 2013Q1

REPORT INFORMATION
  Report Type: Spontaneous
  Country: US (occurrence: None)
  Receive Date: 20130130
  Receipt Date: 20130130
  Transmission Date: 20140127
  Serious: Yes (Other)
  Sender: FDA-Public Use
  Company Number: US201211004552

PATIENT
  Age: 61 Year
  Sex: Female
  Weight: 127.4 kg

DRUGS (7)
  1. BYDUREON [Suspect]
     Indication: TYPE 2 DIABETES MELLITUS
     Dosage: (1/W)
     Route: 058
     Dates: start: 20120820
  2. AMARYL (GLIMEPIRIDE) [Concomitant]
  3. PAROXETINE [Concomitant]
  4. CAPTOPRIL [Concomitant]
  5. BUSPIRONE [Concomitant]
  6. ATENOLOL (ATENOLOL) [Concomitant]
  7. PRAVASTATIN [Concomitant]

REACTIONS (7)
  - Dehydration [None]
  - Urinary tract infection [None]
  - Malaise [None]
  - Nausea [None]
  - Dysgeusia [None]
  - Decreased appetite [None]
  - Eructation [None]
